FAERS Safety Report 18045506 (Version 4)
Quarter: 2020Q3

REPORT INFORMATION
  Report Type: Spontaneous
  Country: US (occurrence: US)
  Receive Date: 20200720
  Receipt Date: 20200930
  Transmission Date: 20201103
  Serious: No
  Sender: FDA-Public Use
  Company Number: US-ASTRAZENECA-2020SE88411

PATIENT
  Sex: Female

DRUGS (2)
  1. SYMBICORT [Suspect]
     Active Substance: BUDESONIDE\FORMOTEROL FUMARATE DIHYDRATE
     Dosage: DOSE UNKNOWN UNKNOWN
     Route: 055
  2. ATIVAN [Concomitant]
     Active Substance: LORAZEPAM

REACTIONS (6)
  - Taste disorder [Unknown]
  - Device use issue [Unknown]
  - Cough [Unknown]
  - Intentional device misuse [Unknown]
  - Device delivery system issue [Unknown]
  - Drug dose omission by device [Unknown]
